FAERS Safety Report 11596027 (Version 1)
Quarter: 2015Q4

REPORT INFORMATION
  Report Type: Report from Study
  Country: JP (occurrence: JP)
  Receive Date: 20151006
  Receipt Date: 20151006
  Transmission Date: 20160304
  Serious: Yes (Hospitalization)
  Sender: FDA-Public Use
  Company Number: PHHY2013JP058168

PATIENT
  Age: 36 Year
  Sex: Female

DRUGS (49)
  1. CLOZARIL [Suspect]
     Active Substance: CLOZAPINE
     Dosage: 150 MG, QD
     Route: 048
     Dates: start: 20121003, end: 20121009
  2. CLOZARIL [Suspect]
     Active Substance: CLOZAPINE
     Dosage: 400 MG, QD
     Route: 048
     Dates: start: 20130307, end: 20130508
  3. CLOZARIL [Suspect]
     Active Substance: CLOZAPINE
     Dosage: 500 MG, QD
     Route: 048
     Dates: start: 20130523, end: 20130529
  4. VEGETAMIN [Concomitant]
     Active Substance: CHLORPROMAZINE HYDROCHLORIDE\PHENOBARBITAL\PROMETHAZINE HYDROCHLORIDE
     Indication: SCHIZOPHRENIA
     Dosage: 2 DF, QD
     Route: 048
     Dates: start: 20130606, end: 20130619
  5. CLOZARIL [Suspect]
     Active Substance: CLOZAPINE
     Dosage: 12.5 MG, QD
     Route: 048
     Dates: start: 20120719, end: 20120724
  6. CLOZARIL [Suspect]
     Active Substance: CLOZAPINE
     Dosage: 350 MG, QD
     Route: 048
     Dates: start: 20121129, end: 20130306
  7. CLOZARIL [Suspect]
     Active Substance: CLOZAPINE
     Dosage: 400 MG, QD
     Route: 048
     Dates: start: 20130725, end: 20130731
  8. CLOZARIL [Suspect]
     Active Substance: CLOZAPINE
     Dosage: 500 MG, QD
     Route: 048
     Dates: start: 20130808, end: 20130821
  9. LIMAS [Concomitant]
     Active Substance: LITHIUM CARBONATE
     Dosage: 600 MG, QD
     Route: 048
     Dates: start: 20130613
  10. SENNOSIDE [Concomitant]
     Active Substance: SENNOSIDES
     Indication: CONSTIPATION PROPHYLAXIS
     Dosage: 48 MG, QD
     Route: 048
     Dates: start: 20120719, end: 20130619
  11. SODIUM VALPROATE [Concomitant]
     Active Substance: VALPROATE SODIUM
     Dosage: 1600 MG, QD
     Route: 048
     Dates: start: 20130627
  12. LIMAS [Concomitant]
     Active Substance: LITHIUM CARBONATE
     Dosage: 600 MG, QD
     Route: 048
     Dates: start: 20130523, end: 20130605
  13. DEPAKENE [Concomitant]
     Active Substance: VALPROIC ACID
     Dosage: 1200 MG, QD
     Route: 048
     Dates: start: 20130606, end: 20130612
  14. FLUNITRAZEPAM [Concomitant]
     Active Substance: FLUNITRAZEPAM
     Dosage: 4 MG, QD
     Route: 048
     Dates: start: 20130523, end: 20130605
  15. SODIUM VALPROATE [Concomitant]
     Active Substance: VALPROATE SODIUM
     Indication: SCHIZOPHRENIA
     Dosage: 1200 MG, QD
     Route: 048
     Dates: start: 20130613, end: 20130626
  16. CLOZARIL [Suspect]
     Active Substance: CLOZAPINE
     Dosage: 75 MG, QD
     Route: 048
     Dates: start: 20120822, end: 20120918
  17. CLOZARIL [Suspect]
     Active Substance: CLOZAPINE
     Dosage: 100 MG, QD
     Route: 048
     Dates: start: 20120926, end: 20121002
  18. CLOZARIL [Suspect]
     Active Substance: CLOZAPINE
     Dosage: 12.5 MG, QD
     Route: 048
     Dates: start: 20130613, end: 20130619
  19. CLOZARIL [Suspect]
     Active Substance: CLOZAPINE
     Dosage: 450 MG, QD
     Route: 048
     Dates: start: 20130801, end: 20130807
  20. CLOZARIL [Suspect]
     Active Substance: CLOZAPINE
     Dosage: 600 MG, QD
     Route: 048
     Dates: start: 20130822
  21. DEPAKENE [Concomitant]
     Active Substance: VALPROIC ACID
     Indication: SCHIZOPHRENIA
     Dosage: 600 MG, QD
     Route: 048
     Dates: start: 20120719, end: 20130213
  22. CLOZARIL [Suspect]
     Active Substance: CLOZAPINE
     Dosage: 425 MG, QD
     Route: 048
     Dates: start: 20130509, end: 20130522
  23. CLOZARIL [Suspect]
     Active Substance: CLOZAPINE
     Dosage: 150 MG, QD
     Route: 048
     Dates: start: 20130627, end: 20130703
  24. LIMAS [Concomitant]
     Active Substance: LITHIUM CARBONATE
     Indication: SCHIZOPHRENIA
     Dosage: 1000 MG, QD
     Route: 048
     Dates: start: 20120719, end: 20130213
  25. LEUCON [Concomitant]
     Indication: PROPHYLAXIS
     Dosage: 30 MG, QD
     Route: 048
     Dates: start: 20120719, end: 20120731
  26. LOSIZOPILON [Concomitant]
     Indication: SCHIZOPHRENIA
     Dosage: 150 MG, QD
     Route: 048
     Dates: start: 20120719, end: 20120731
  27. SENNOSIDE [Concomitant]
     Active Substance: SENNOSIDES
     Dosage: 24 MG, QD
     Route: 048
     Dates: start: 20130912
  28. METHYCOBAL [Concomitant]
     Active Substance: METHYLCOBALAMIN
     Indication: NEUROPATHY PERIPHERAL
     Dosage: 1500 MG, QD
     Route: 048
     Dates: start: 20130627, end: 20130710
  29. CLOZARIL [Suspect]
     Active Substance: CLOZAPINE
     Indication: SCHIZOPHRENIA
     Dosage: UNK
     Route: 048
     Dates: start: 20111124
  30. CLOZARIL [Suspect]
     Active Substance: CLOZAPINE
     Dosage: 50 MG, QD
     Route: 048
     Dates: start: 20120919, end: 20120925
  31. CLOZARIL [Suspect]
     Active Substance: CLOZAPINE
     Dosage: 200 MG, QD
     Route: 048
     Dates: start: 20121010, end: 20121120
  32. CLOZARIL [Suspect]
     Active Substance: CLOZAPINE
     Dosage: 300 MG, QD
     Route: 048
     Dates: start: 20121121, end: 20121128
  33. CLOZARIL [Suspect]
     Active Substance: CLOZAPINE
     Dosage: 200 MG, QD
     Route: 048
     Dates: start: 20130530, end: 20130605
  34. CLOZARIL [Suspect]
     Active Substance: CLOZAPINE
     Dosage: 75 MG, QD
     Route: 048
     Dates: start: 20130620, end: 20130626
  35. CLOZARIL [Suspect]
     Active Substance: CLOZAPINE
     Dosage: 250 MG, QD
     Route: 048
     Dates: start: 20130704, end: 20130710
  36. CLOZARIL [Suspect]
     Active Substance: CLOZAPINE
     Dosage: 350 MG, QD
     Route: 048
     Dates: start: 20130711, end: 20130724
  37. GASMOTIN [Concomitant]
     Active Substance: MOSAPRIDE CITRATE
     Indication: PROPHYLAXIS
     Dosage: 15 MG, QD
     Route: 048
     Dates: start: 20120719, end: 20130213
  38. FLUNITRAZEPAM [Concomitant]
     Active Substance: FLUNITRAZEPAM
     Dosage: 4 MG, QD
     Route: 048
     Dates: start: 20130620
  39. HIBERNA [Concomitant]
     Active Substance: PROMETHAZINE HYDROCHLORIDE
     Indication: PARKINSONISM
     Dosage: 100 MG, QD
     Route: 048
     Dates: start: 20130523, end: 20130605
  40. LINTON [Concomitant]
     Active Substance: HALOPERIDOL
     Indication: SCHIZOPHRENIA
     Dosage: 9 MG, QD
     Route: 048
     Dates: start: 20130606, end: 20130612
  41. CLOZARIL [Suspect]
     Active Substance: CLOZAPINE
     Dosage: 25 MG, QD
     Route: 048
     Dates: start: 20120725, end: 20120731
  42. CLOZARIL [Suspect]
     Active Substance: CLOZAPINE
     Dosage: 50 MG, QD
     Route: 048
     Dates: start: 20120801, end: 20120821
  43. LIMAS [Concomitant]
     Active Substance: LITHIUM CARBONATE
     Dosage: 800 MG, QD
     Route: 048
     Dates: start: 20130214, end: 20130522
  44. LEUCON [Concomitant]
     Dosage: 60 MG, QD
     Route: 048
     Dates: start: 20120801, end: 20130605
  45. FLUNITRAZEPAM [Concomitant]
     Active Substance: FLUNITRAZEPAM
     Indication: INSOMNIA
     Dosage: 4 MG, QD
     Route: 048
     Dates: start: 20120719, end: 20130227
  46. FLUNITRAZEPAM [Concomitant]
     Active Substance: FLUNITRAZEPAM
     Dosage: 2 MG, QD
     Route: 048
     Dates: start: 20130228, end: 20130522
  47. DAIKENCHUTO [Concomitant]
     Active Substance: HERBALS
     Indication: CONSTIPATION PROPHYLAXIS
     Dosage: 15000 MG, QD
     Route: 048
     Dates: start: 20120719, end: 20130619
  48. DAIKENCHUTO [Concomitant]
     Active Substance: HERBALS
     Dosage: 15000 MG, QD
     Route: 048
     Dates: start: 20130912
  49. VANARL E [Concomitant]
     Indication: MYOSITIS
     Dosage: 150 MG, QD
     Route: 048
     Dates: start: 20130627, end: 20130710

REACTIONS (3)
  - Sedation [Recovered/Resolved]
  - Schizophrenia [Not Recovered/Not Resolved]
  - Sedation [Recovered/Resolved]

NARRATIVE: CASE EVENT DATE: 20120919
